FAERS Safety Report 10128500 (Version 1)
Quarter: 2014Q2

REPORT INFORMATION
  Report Type: Spontaneous
  Country: IT (occurrence: IT)
  Receive Date: 20140428
  Receipt Date: 20140428
  Transmission Date: 20141212
  Serious: Yes (Other)
  Sender: FDA-Public Use
  Company Number: IT-RANBAXY-2014RR-80656

PATIENT
  Age: 3 Year
  Sex: Male
  Weight: 18 kg

DRUGS (3)
  1. PARACETAMOL [Suspect]
     Indication: INFLUENZA
     Dosage: 1 DF, WHEN NECESSARY
     Route: 048
     Dates: start: 20140329, end: 20140331
  2. ERDOTIN [Suspect]
     Indication: INFLUENZA
     Dosage: 1 DF, WHEN NECESSARY
     Route: 048
     Dates: start: 20140329, end: 20140331
  3. NUROFEN [Suspect]
     Indication: INFLUENZA
     Dosage: 1 DF, WHEN NECESSARY
     Route: 048
     Dates: start: 20140329, end: 20140331

REACTIONS (2)
  - Angioedema [Recovered/Resolved]
  - Urticaria [Recovered/Resolved]
